FAERS Safety Report 8251582-3 (Version None)
Quarter: 2012Q2

REPORT INFORMATION
  Report Type: 
  Country: None (occurrence: None)
  Receive Date: 20120402
  Receipt Date: 20120216
  Transmission Date: 20120825
  Serious: No
  Sender: FDA-Public Use
  Company Number: US-ABBOTT-11P-163-0877162-00

PATIENT
  Sex: Male
  Weight: 97.61 kg

DRUGS (5)
  1. UNKNOWN MEDICATION [Concomitant]
     Indication: HYPERTENSION
  2. UNKNOWN MEDICATION [Concomitant]
     Indication: BLOOD CHOLESTEROL
  3. UNKNOWN MEDICATION [Concomitant]
     Indication: ARTHRITIS
  4. ANDROGEL [Suspect]
     Indication: BLOOD TESTOSTERONE DECREASED
     Dosage: 4 PUMPS PER DAY
     Dates: start: 20110701
  5. UNKNOWN MEDICATION [Concomitant]
     Indication: DIABETES MELLITUS

REACTIONS (5)
  - BLOOD TESTOSTERONE DECREASED [None]
  - DRUG INEFFECTIVE [None]
  - POOR QUALITY DRUG ADMINISTERED [None]
  - FEELING ABNORMAL [None]
  - FATIGUE [None]
